FAERS Safety Report 11497550 (Version 1)
Quarter: 2015Q3

REPORT INFORMATION
  Report Type: Spontaneous
  Country: NL (occurrence: NL)
  Receive Date: 20150911
  Receipt Date: 20150911
  Transmission Date: 20151125
  Serious: Yes (Other)
  Sender: FDA-Public Use
  Company Number: NL-PFIZER INC-2015290780

PATIENT

DRUGS (1)
  1. CARDURA [Suspect]
     Active Substance: DOXAZOSIN MESYLATE
     Dosage: 4 MG, UNK

REACTIONS (1)
  - Angiopathy [Unknown]
